FAERS Safety Report 6104176-X (Version None)
Quarter: 2009Q1

REPORT INFORMATION
  Report Type: 
  Country: None (occurrence: None)
  Receive Date: 20090305
  Receipt Date: 20090219
  Transmission Date: 20090719
  Serious: Yes (Death)
  Sender: FDA-Public Use
  Company Number: ES-GENENTECH-278168

PATIENT
  Age: 85 Year
  Sex: Male

DRUGS (1)
  1. AVASTIN [Suspect]
     Indication: GLAUCOMA
     Dosage: 1.25 MG, UNK
     Route: 031
     Dates: start: 20081123, end: 20081123

REACTIONS (1)
  - CEREBROVASCULAR ACCIDENT [None]
